FAERS Safety Report 6766578-8 (Version None)
Quarter: 2010Q2

REPORT INFORMATION
  Report Type: 
  Country: None (occurrence: None)
  Receive Date: 20100611
  Receipt Date: 20100602
  Transmission Date: 20101027
  Serious: Yes (Hospitalization)
  Sender: FDA-Public Use
  Company Number: US-ROCHE-696680

PATIENT
  Sex: Male
  Weight: 68.9 kg

DRUGS (18)
  1. TOCILIZUMAB [Suspect]
     Indication: RHEUMATOID ARTHRITIS
     Dosage: FORM LIQUID, LAST DOSE ON 12 APRIL 2010
     Route: 042
     Dates: start: 20080804
  2. BLINDED TOCILIZUMAB [Suspect]
     Indication: RHEUMATOID ARTHRITIS
     Dosage: LAST DOSE: 15 FEB 2010, DOSE: BLINDED
     Route: 042
     Dates: start: 20080218
  3. PREDNISONE [Concomitant]
     Dates: start: 20070329
  4. METHOTREXATE [Concomitant]
     Dosage: DOSE: 15 MG/ WEEK
     Dates: start: 20070329
  5. FOLIC ACID [Concomitant]
     Dates: start: 20070329
  6. TUMS [Concomitant]
     Dosage: TUMS (CALCIUM)
     Dates: start: 20070613
  7. FOSAMAX [Concomitant]
     Dosage: DOSE: 70 MG/WEEK
     Dates: start: 20080104
  8. TRAMADOL HCL [Concomitant]
     Dosage: 50 MG (2 TABLETS)
     Dates: start: 20070430, end: 20080512
  9. TRAMADOL HCL [Concomitant]
     Dates: start: 20080513
  10. ES TYLENOL [Concomitant]
     Dates: start: 20070430
  11. GLUCOSAMINE SULFATE/CHONDROITIN [Concomitant]
     Dosage: DRUG: GLUCOSAMINE CHONDROITIN WITH MSM
     Dates: start: 20080801, end: 20090330
  12. GLUCOSAMINE SULFATE/CHONDROITIN [Concomitant]
     Dosage: DRUG: GLUCOSAMINE CHONDROITIN WITH MSM
     Dates: start: 20090331
  13. MULTI-VITAMIN [Concomitant]
     Dosage: DRUG: MULTIVITAMIN WITH MINERALS
     Dates: start: 20090331
  14. MULTI-VITAMIN [Concomitant]
     Dosage: DRUG: MULTIVITAMIN WITH MINERALS
     Dates: start: 20070430, end: 20090330
  15. PREVACID [Concomitant]
     Dates: start: 20070430, end: 20100312
  16. PREVACID [Concomitant]
     Dates: start: 20100313
  17. NEXIUM [Concomitant]
     Dates: start: 20070430, end: 20100312
  18. MAGNESIUM OXIDE [Concomitant]
     Dates: start: 20070430, end: 20090330

REACTIONS (1)
  - CEREBROVASCULAR ACCIDENT [None]
